FAERS Safety Report 17151350 (Version 2)
Quarter: 2019Q4

REPORT INFORMATION
  Report Type: Spontaneous
  Country: US (occurrence: US)
  Receive Date: 20191213
  Receipt Date: 20191226
  Transmission Date: 20200122
  Serious: No
  Sender: FDA-Public Use
  Company Number: US-PFIZER INC-2019536762

PATIENT
  Sex: Female

DRUGS (2)
  1. PREMPRO [Suspect]
     Active Substance: ESTROGENS, CONJUGATED\MEDROXYPROGESTERONE ACETATE
     Indication: HOT FLUSH
     Dosage: UNK  [0.3-1.5 MG]
  2. PREMPRO [Suspect]
     Active Substance: ESTROGENS, CONJUGATED\MEDROXYPROGESTERONE ACETATE
     Indication: HORMONE LEVEL ABNORMAL
     Dosage: 0.3 MG, 1X/DAY (TAKEN THREE OF THEM)

REACTIONS (7)
  - Nervousness [Unknown]
  - Malaise [Unknown]
  - Abdominal discomfort [Unknown]
  - Insomnia [Unknown]
  - Dizziness [Unknown]
  - Sluggishness [Unknown]
  - Pain [Unknown]
